FAERS Safety Report 19465789 (Version 2)
Quarter: 2021Q2

REPORT INFORMATION
  Report Type: Report from Study
  Country: BE (occurrence: BE)
  Receive Date: 20210626
  Receipt Date: 20210626
  Transmission Date: 20210717
  Serious: Yes (Other)
  Sender: FDA-Public Use
  Company Number: BE-TEVA-2021-BE-1925581

PATIENT
  Age: 51 Year
  Sex: Female

DRUGS (1)
  1. COPAXONE [Suspect]
     Active Substance: GLATIRAMER ACETATE
     Indication: MULTIPLE SCLEROSIS
     Route: 065
     Dates: start: 20161219

REACTIONS (5)
  - Injection site pain [Recovered/Resolved with Sequelae]
  - Burning sensation [Unknown]
  - Sensitive skin [Unknown]
  - Fat necrosis [Recovered/Resolved with Sequelae]
  - Scar [Not Recovered/Not Resolved]

NARRATIVE: CASE EVENT DATE: 20210209
